APPROVED DRUG PRODUCT: FUROSEMIDE
Active Ingredient: FUROSEMIDE
Strength: 10MG/ML
Dosage Form/Route: INJECTABLE;INJECTION
Application: A071439 | Product #001
Applicant: HIKMA PHARMACEUTICALS USA INC
Approved: Sep 14, 1990 | RLD: No | RS: No | Type: DISCN